FAERS Safety Report 19798314 (Version 1)
Quarter: 2021Q3

REPORT INFORMATION
  Report Type: Spontaneous
  Country: US (occurrence: US)
  Receive Date: 20210907
  Receipt Date: 20210907
  Transmission Date: 20211014
  Serious: No
  Sender: FDA-Public Use
  Company Number: None

PATIENT
  Age: 44 Year
  Sex: Male

DRUGS (1)
  1. CBD PRODUCT [Suspect]
     Active Substance: CANNABIDIOL

REACTIONS (2)
  - Accidental overdose [None]
  - Panic attack [None]

NARRATIVE: CASE EVENT DATE: 20210904
